FAERS Safety Report 16419996 (Version 2)
Quarter: 2019Q3

REPORT INFORMATION
  Report Type: Spontaneous
  Country: US (occurrence: US)
  Receive Date: 20190612
  Receipt Date: 20190702
  Transmission Date: 20191004
  Serious: Yes (Other)
  Sender: FDA-Public Use
  Company Number: US-BAYER-2019-113033

PATIENT
  Age: 22 Year
  Sex: Female
  Weight: 99 kg

DRUGS (2)
  1. MIRENA [Suspect]
     Active Substance: LEVONORGESTREL
     Dosage: 20 MCG/24HR, CONT
     Route: 015
     Dates: start: 20190422
  2. MIRENA [Suspect]
     Active Substance: LEVONORGESTREL

REACTIONS (3)
  - Genital haemorrhage [None]
  - Device expulsion [Not Recovered/Not Resolved]
  - Menstruation irregular [None]

NARRATIVE: CASE EVENT DATE: 20190603
